FAERS Safety Report 8225596-3 (Version None)
Quarter: 2012Q1

REPORT INFORMATION
  Report Type: 
  Country: None (occurrence: None)
  Receive Date: 20120321
  Receipt Date: 20120314
  Transmission Date: 20120608
  Serious: Yes (Hospitalization, Other)
  Sender: FDA-Public Use
  Company Number: CA-JNJFOC-20120200761

PATIENT
  Sex: Female
  Weight: 62 kg

DRUGS (4)
  1. IMURAN [Concomitant]
     Route: 065
  2. TYLENOL [Concomitant]
     Route: 065
  3. ENTOCORT EC [Concomitant]
     Route: 065
  4. REMICADE [Suspect]
     Indication: CROHN'S DISEASE
     Route: 042
     Dates: start: 20120101

REACTIONS (1)
  - OBSTRUCTION GASTRIC [None]
